FAERS Safety Report 7512830-8 (Version None)
Quarter: 2011Q2

REPORT INFORMATION
  Report Type: 
  Country: None (occurrence: None)
  Receive Date: 20110531
  Receipt Date: 20110517
  Transmission Date: 20111010
  Serious: Yes (Other)
  Sender: FDA-Public Use
  Company Number: US-ELI_LILLY_AND_COMPANY-US201102006182

PATIENT
  Sex: Female
  Weight: 80.99 kg

DRUGS (12)
  1. CYMBALTA [Suspect]
     Dosage: 60 MG, QD
     Route: 048
  2. TOPROL-XL [Concomitant]
     Route: 048
  3. SIMVASTATIN [Concomitant]
     Dosage: 40 MG, EACH EVENING
     Route: 048
  4. NEURONTIN                               /USA/ [Concomitant]
     Dosage: 600 MG, BID
     Route: 048
  5. ALCOHOL [Concomitant]
  6. METHOCARBAMOL [Concomitant]
     Dosage: 750 MG, BID
     Route: 048
  7. CYMBALTA [Suspect]
     Indication: FIBROMYALGIA
     Dosage: 60 MG, EACH EVENING
     Dates: start: 20060927, end: 20110214
  8. MUSCLE RELAXANTS [Concomitant]
  9. MELOXICAM [Concomitant]
     Dosage: 7.5 MG, QD
     Route: 048
  10. KLONOPIN [Concomitant]
     Dosage: 0.25 MG, BID
     Route: 048
  11. KLONOPIN [Concomitant]
     Dosage: 50 MG, QD
  12. LORTAB [Concomitant]

REACTIONS (9)
  - DRUG WITHDRAWAL SYNDROME [None]
  - DIZZINESS [None]
  - PARAESTHESIA [None]
  - COMPRESSION FRACTURE [None]
  - UPPER LIMB FRACTURE [None]
  - FALL [None]
  - ARTHRALGIA [None]
  - SOMNOLENCE [None]
  - BACK PAIN [None]
